FAERS Safety Report 8328784-0 (Version None)
Quarter: 2012Q2

REPORT INFORMATION
  Report Type: 
  Country: None (occurrence: None)
  Receive Date: 20120502
  Receipt Date: 20120424
  Transmission Date: 20120825
  Serious: Yes (Other)
  Sender: FDA-Public Use
  Company Number: US-BAYER-2012-030755

PATIENT
  Sex: Female
  Weight: 92.971 kg

DRUGS (3)
  1. MIRENA [Suspect]
     Indication: CONTRACEPTION
     Dosage: 20 MCG/24HR, CONT
     Route: 015
     Dates: start: 20081022
  2. SYNTHROID [Concomitant]
     Indication: HYPOTHYROIDISM
  3. ALLEGRA [Concomitant]
     Indication: HYPERSENSITIVITY

REACTIONS (2)
  - DEVICE DISLOCATION [None]
  - UTERINE LEIOMYOMA [None]
